FAERS Safety Report 8658255 (Version 2)
Quarter: 2013Q2

REPORT INFORMATION
  Report Type: Report from Study
  Country: BR (occurrence: BR)
  Receive Date: 20120710
  Receipt Date: 20130518
  Transmission Date: 20140414
  Serious: No
  Sender: FDA-Public Use
  Company Number: BR-US-EMD SERONO, INC.-7145318

PATIENT
  Age: 37 Year
  Sex: Female

DRUGS (2)
  1. REBIF [Suspect]
     Indication: RELAPSING-REMITTING MULTIPLE SCLEROSIS
     Dates: start: 20100914
  2. DALSY [Concomitant]
     Indication: PRODUCT USED FOR UNKNOWN INDICATION

REACTIONS (13)
  - White blood cells urine positive [Unknown]
  - Neurogenic bladder [Unknown]
  - Urinary tract infection [Unknown]
  - Bacterial test positive [Unknown]
  - Nitrite urine present [Unknown]
  - Facial pain [Recovered/Resolved]
  - Toothache [Recovered/Resolved]
  - Ear pain [Recovered/Resolved]
  - Pain [Unknown]
  - Headache [Recovered/Resolved]
  - Fatigue [Unknown]
  - Pyrexia [Unknown]
  - Injection site erythema [Unknown]
